FAERS Safety Report 6380264-8 (Version None)
Quarter: 2009Q3

REPORT INFORMATION
  Report Type: 
  Country: None (occurrence: None)
  Receive Date: 20090929
  Receipt Date: 20090920
  Transmission Date: 20100115
  Serious: Yes (Hospitalization)
  Sender: FDA-Public Use
  Company Number: US-ROCHE-647096

PATIENT
  Age: 71 Year
  Sex: Female

DRUGS (4)
  1. BONIVA [Suspect]
     Indication: OSTEOPOROSIS
     Route: 048
     Dates: start: 20070101
  2. PREDNISONE TAB [Concomitant]
  3. LEVOXYL [Concomitant]
     Dosage: DRUG: LEVOXAL
  4. CALCIUM [Concomitant]

REACTIONS (1)
  - FEMUR FRACTURE [None]
